FAERS Safety Report 23657481 (Version 1)
Quarter: 2024Q1

REPORT INFORMATION
  Report Type: Spontaneous
  Country: US (occurrence: None)
  Receive Date: 20240320
  Receipt Date: 20240320
  Transmission Date: 20240410
  Serious: No
  Sender: FDA-Public Use
  Company Number: None

PATIENT
  Sex: 0

DRUGS (1)
  1. GILENYA [Suspect]
     Active Substance: FINGOLIMOD HYDROCHLORIDE
     Indication: Multiple sclerosis

REACTIONS (4)
  - Multiple sclerosis relapse [None]
  - Product distribution issue [None]
  - Headache [None]
  - Cognitive disorder [None]

NARRATIVE: CASE EVENT DATE: 20240319
